FAERS Safety Report 10871979 (Version 1)
Quarter: 2015Q1

REPORT INFORMATION
  Report Type: Spontaneous
  Country: GB (occurrence: GB)
  Receive Date: 20150226
  Receipt Date: 20150226
  Transmission Date: 20150721
  Serious: Yes (Other)
  Sender: FDA-Public Use
  Company Number: GB-WATSON-2015-03118

PATIENT
  Age: 22 Year
  Sex: Male
  Weight: 71 kg

DRUGS (1)
  1. MIRTAZAPINE (UNKNOWN) [Suspect]
     Active Substance: MIRTAZAPINE
     Indication: DEPRESSION
     Dosage: 15 MG, QHS
     Route: 048
     Dates: start: 20150129, end: 20150204

REACTIONS (2)
  - Aggression [Recovered/Resolved]
  - Mania [Not Recovered/Not Resolved]

NARRATIVE: CASE EVENT DATE: 20150129
